FAERS Safety Report 4443957-5 (Version None)
Quarter: 2004Q3

REPORT INFORMATION
  Report Type: 
  Country: None (occurrence: None)
  Receive Date: 20040729
  Receipt Date: 20040503
  Transmission Date: 20050211
  Serious: Yes (Other)
  Sender: FDA-Public Use
  Company Number: US-JNJFOC-20040302224

PATIENT
  Age: 35 Year
  Sex: Male

DRUGS (5)
  1. RISPERDAL CONSTA [Suspect]
     Indication: HALLUCINATION
     Dosage: , 1 IN 2 WEEK, INTRA-MUSCULAR
     Route: 030
     Dates: start: 20031226, end: 20040201
  2. HALDOL (HALIPERIDOL) TABLETS [Concomitant]
  3. NEUTONTIN (GABAPENTIN) TABLETS [Concomitant]
  4. KLONOPIN [Concomitant]
  5. WELLBUTRIN [Concomitant]

REACTIONS (2)
  - ANAPHYLACTIC REACTION [None]
  - NASOPHARYNGITIS [None]
